FAERS Safety Report 4797295-1 (Version None)
Quarter: 2005Q4

REPORT INFORMATION
  Report Type: 
  Country: None (occurrence: None)
  Receive Date: 20051013
  Receipt Date: 20051007
  Transmission Date: 20060501
  Serious: Yes (Death)
  Sender: FDA-Public Use
  Company Number: JP-JPN-A20052403

PATIENT
  Age: 73 Year
  Sex: Male

DRUGS (9)
  1. PAXIL [Suspect]
     Indication: DEPRESSION
     Dosage: 10MG TWICE PER DAY
     Route: 048
     Dates: start: 20051003, end: 20051005
  2. MARGENOL [Concomitant]
     Dosage: 50MG THREE TIMES PER DAY
     Route: 048
     Dates: start: 20051003
  3. ANPLAG [Concomitant]
     Route: 048
  4. ASCOMARNA [Concomitant]
     Route: 048
     Dates: start: 20051005, end: 20051005
  5. NAUZELIN [Concomitant]
     Route: 065
  6. BERIZYM [Concomitant]
     Route: 048
  7. SELBEX [Concomitant]
     Route: 048
  8. TANATRIL [Concomitant]
     Route: 048
  9. URINORM [Concomitant]
     Route: 048

REACTIONS (1)
  - COMPLETED SUICIDE [None]
